FAERS Safety Report 4988992-3 (Version None)
Quarter: 2006Q2

REPORT INFORMATION
  Report Type: 
  Country: None (occurrence: None)
  Receive Date: 20060426
  Receipt Date: 20060413
  Transmission Date: 20061013
  Serious: Yes (Hospitalization)
  Sender: FDA-Public Use
  Company Number: DE-2006-003399

PATIENT
  Age: 31 Year
  Sex: Female

DRUGS (2)
  1. MIRANOVA [Suspect]
     Indication: ORAL CONTRACEPTION
     Dosage: 2 TAB(S), 1X/DAY, ORAL
     Route: 048
     Dates: start: 20050331, end: 20051012
  2. YASMIN [Suspect]
     Indication: ORAL CONTRACEPTION
     Dosage: 1 TAB(S), 1X/DAY, ORAL
     Route: 048
     Dates: start: 20051109

REACTIONS (5)
  - BREAST CANCER [None]
  - LYMPHANGIOSIS CARCINOMATOSA [None]
  - METASTASES TO LYMPH NODES [None]
  - OESTROGEN RECEPTOR ASSAY POSITIVE [None]
  - PROGESTERONE RECEPTOR ASSAY POSITIVE [None]
